FAERS Safety Report 9567616 (Version 2)
Quarter: 2013Q3

REPORT INFORMATION
  Report Type: Spontaneous
  Country: US (occurrence: US)
  Receive Date: 20130930
  Receipt Date: 20130930
  Transmission Date: 20140515
  Serious: No
  Sender: FDA-Public Use
  Company Number: US-AMGEN-USASP2012007120

PATIENT
  Age: 55 Year
  Sex: Female

DRUGS (10)
  1. ENBREL [Suspect]
     Indication: PSORIASIS
     Dosage: 50 MG, QWK
     Dates: start: 20110501, end: 2011
  2. ENBREL [Suspect]
     Indication: PSORIATIC ARTHROPATHY
  3. ALDACTONE                          /00006201/ [Concomitant]
     Dosage: UNK
  4. CALTRATE + D                       /00944201/ [Concomitant]
     Dosage: UNK
  5. CELEXA                             /00582602/ [Concomitant]
     Dosage: UNK
  6. ENABLEX                            /01760401/ [Concomitant]
     Dosage: UNK
  7. LACTULOSE [Concomitant]
     Dosage: UNK
  8. LASIX                              /00032601/ [Concomitant]
     Dosage: UNK
  9. NADOLOL [Concomitant]
     Dosage: UNK
  10. ZEGERID                            /00661201/ [Concomitant]
     Dosage: UNK

REACTIONS (1)
  - Drug ineffective [Unknown]
